FAERS Safety Report 25725154 (Version 1)
Quarter: 2025Q3

REPORT INFORMATION
  Report Type: Spontaneous
  Country: GB (occurrence: GB)
  Receive Date: 20250826
  Receipt Date: 20250826
  Transmission Date: 20251020
  Serious: Yes (Other)
  Sender: ALKEM
  Company Number: None

PATIENT
  Age: 51 Year
  Sex: Male

DRUGS (2)
  1. PREGABALIN [Suspect]
     Active Substance: PREGABALIN
     Indication: Product used for unknown indication
     Route: 065
  2. PREGABALIN [Suspect]
     Active Substance: PREGABALIN
     Route: 065

REACTIONS (1)
  - Hallucination [Recovered/Resolved]
